FAERS Safety Report 7743182-6 (Version None)
Quarter: 2011Q3

REPORT INFORMATION
  Report Type: 
  Country: None (occurrence: None)
  Receive Date: 20110912
  Receipt Date: 20110829
  Transmission Date: 20111222
  Serious: Yes (Other)
  Sender: FDA-Public Use
  Company Number: US-SANOFI-AVENTIS-2011SA056077

PATIENT
  Age: 49 Year
  Sex: Female

DRUGS (11)
  1. THERAPEUTIC RADIOPHARMACEUTICALS [Suspect]
     Dosage: 1 DAY TREATMENT BREAK, FRACTION SIZE OF 200 CGY: TOTAL 1200 CGY
     Route: 065
  2. ALL OTHER THERAPEUTIC PRODUCTS [Concomitant]
     Indication: LANGERHANS' CELL HISTIOCYTOSIS
     Dosage: 3 SESSIONS PER WEEK
  3. CLADRIBINE [Suspect]
     Indication: LANGERHANS' CELL HISTIOCYTOSIS
     Route: 065
  4. VINBLASTINE SULFATE [Suspect]
     Indication: LANGERHANS' CELL HISTIOCYTOSIS
     Route: 065
  5. ALL OTHER THERAPEUTIC PRODUCTS [Concomitant]
     Dosage: 3 SESSIONS PER WEEK
  6. CYCLOPHOSPHAMIDE [Suspect]
     Indication: LANGERHANS' CELL HISTIOCYTOSIS
     Route: 065
  7. METHOTREXATE [Suspect]
     Indication: LANGERHANS' CELL HISTIOCYTOSIS
     Route: 065
  8. FLUDARABINE PHOSPHATE [Suspect]
     Indication: LANGERHANS' CELL HISTIOCYTOSIS
     Route: 065
  9. VINBLASTINE SULFATE [Suspect]
     Route: 065
  10. THERAPEUTIC RADIOPHARMACEUTICALS [Suspect]
     Indication: LANGERHANS' CELL HISTIOCYTOSIS
     Dosage: DAILY FRACTION SIZE OF 200 CGY WITH 2 OPPOSED 6-MV PHOTON FIELDS FOR  TOTAL 6 FRACTIONS (1200 CGY)
     Route: 065
  11. THERAPEUTIC RADIOPHARMACEUTICALS [Suspect]
     Dosage: DAILY FRACTION SIZE OF 200 CGY: TOTAL 1200 CGY USING TWO 9 MEV AND ONE 6 MEV ENFACE ELECTRON FIELDS.
     Route: 065

REACTIONS (5)
  - SKIN SENSITISATION [None]
  - NEUROPATHY PERIPHERAL [None]
  - PAIN [None]
  - SKIN DISORDER [None]
  - NEUTROPENIA [None]
